FAERS Safety Report 16781309 (Version 3)
Quarter: 2020Q2

REPORT INFORMATION
  Report Type: Spontaneous
  Country: US (occurrence: US)
  Receive Date: 20190906
  Receipt Date: 20200612
  Transmission Date: 20200713
  Serious: No
  Sender: FDA-Public Use
  Company Number: US-SA-2019SA243593

PATIENT

DRUGS (2)
  1. AUBAGIO [Suspect]
     Active Substance: TERIFLUNOMIDE
     Dosage: 7 MG, QD
     Route: 048
     Dates: start: 20190508
  2. AUBAGIO [Suspect]
     Active Substance: TERIFLUNOMIDE
     Indication: MULTIPLE SCLEROSIS
     Dosage: 7 MG, QD
     Route: 048
     Dates: start: 20190222

REACTIONS (7)
  - Hyperhidrosis [Unknown]
  - Visual impairment [Unknown]
  - Muscle spasms [Recovered/Resolved]
  - Product dose omission [Unknown]
  - Migraine [Unknown]
  - Bladder disorder [Unknown]
  - Fall [Unknown]

NARRATIVE: CASE EVENT DATE: 2019
